FAERS Safety Report 4311099-5 (Version None)
Quarter: 2004Q1

REPORT INFORMATION
  Report Type: 
  Country: None (occurrence: None)
  Receive Date: 20040302
  Receipt Date: 20040217
  Transmission Date: 20041129
  Serious: No
  Sender: FDA-Public Use
  Company Number: 04P-167-0250791-00

PATIENT

DRUGS (3)
  1. ULTIVA [Suspect]
     Indication: NEUROMUSCULAR BLOCKADE
     Dosage: 3 MCG/KG, OVER 60 SECONDS, INTRAVENOUS
     Route: 042
  2. PROPOFOL [Suspect]
     Indication: ANAESTHESIA
     Dosage: 3 MG/KG, OVER 5 SECONDS, INTRAVENOUS
     Route: 042
  3. ATROPINE [Suspect]
     Indication: ANAESTHESIA
     Dosage: 10 MCG/KG, OVER 5 SECONDS, INTRAVENOUS
     Route: 042

REACTIONS (1)
  - GRAND MAL CONVULSION [None]
